FAERS Safety Report 18977232 (Version 1)
Quarter: 2021Q1

REPORT INFORMATION
  Report Type: Spontaneous
  Country: JP (occurrence: JP)
  Receive Date: 20210306
  Receipt Date: 20210306
  Transmission Date: 20210420
  Serious: Yes (Life-Threatening, Hospitalization)
  Sender: FDA-Public Use
  Company Number: JP-TEVA-2021-JP-1887560

PATIENT
  Age: 32 Year
  Sex: Female
  Weight: 75 kg

DRUGS (16)
  1. HYDROCORTISONE. [Suspect]
     Active Substance: HYDROCORTISONE
     Indication: POSTERIOR REVERSIBLE ENCEPHALOPATHY SYNDROME
     Dosage: 500 MILLIGRAM DAILY; PULSE TREATMENT; FOR 2 DAYS
     Route: 065
  2. HYDROCORTISONE. [Suspect]
     Active Substance: HYDROCORTISONE
     Indication: POSTERIOR REVERSIBLE ENCEPHALOPATHY SYNDROME
     Dosage: 200 MILLIGRAM DAILY; PULSE TREATMENT; FOR 2 DAYS
     Route: 065
  3. PROPOFOL. [Suspect]
     Active Substance: PROPOFOL
     Indication: STATUS EPILEPTICUS
     Dosage: CONTINUOUS ADMINISTRATION
     Route: 065
  4. HYDROCORTISONE. [Suspect]
     Active Substance: HYDROCORTISONE
     Indication: POSTERIOR REVERSIBLE ENCEPHALOPATHY SYNDROME
     Dosage: 100 MILLIGRAM DAILY; PULSE TREATMENT; FOR 2 DAYS
     Route: 065
  5. MEDROXYPROGESTERONE [Suspect]
     Active Substance: MEDROXYPROGESTERONE
     Indication: OVARIAN DISORDER
     Route: 065
  6. MIDAZOLAM. [Concomitant]
     Active Substance: MIDAZOLAM
     Indication: STATUS EPILEPTICUS
     Dosage: CONTINUOUS ADMINISTRATION
     Route: 065
  7. LEVETIRACETAM. [Concomitant]
     Active Substance: LEVETIRACETAM
     Indication: SEIZURE
     Dosage: 3000 MILLIGRAM DAILY;
     Route: 065
  8. EDARAVONE [Concomitant]
     Active Substance: EDARAVONE
     Indication: PRODUCT USED FOR UNKNOWN INDICATION
     Dosage: 60 MILLIGRAM DAILY;
     Route: 065
  9. MAGNESIUM SULFATE. [Concomitant]
     Active Substance: MAGNESIUM SULFATE
     Indication: POSTERIOR REVERSIBLE ENCEPHALOPATHY SYNDROME
     Dosage: 4 GRAM DAILY; FOR 3 DAYS
     Route: 065
  10. PERAMPANEL [Concomitant]
     Active Substance: PERAMPANEL
     Indication: PRODUCT USED FOR UNKNOWN INDICATION
     Dosage: 2 MILLIGRAM DAILY;
     Route: 065
  11. FOSPHENYTOIN [Concomitant]
     Active Substance: FOSPHENYTOIN
     Indication: SEIZURE
     Route: 065
  12. FENTANYL. [Concomitant]
     Active Substance: FENTANYL
     Indication: STATUS EPILEPTICUS
     Dosage: .5 MILLIGRAM DAILY; CONTINUOUS ADMINISTRATION
     Route: 065
  13. CONJUGATED ESTROGENS [Suspect]
     Active Substance: ESTROGENS, CONJUGATED
     Indication: OVARIAN DISORDER
     Route: 065
  14. GLYCEROL [Concomitant]
     Active Substance: GLYCERIN
     Indication: POSTERIOR REVERSIBLE ENCEPHALOPATHY SYNDROME
     Dosage: 400 ML DAILY;
     Route: 065
  15. HYDROCORTISONE. [Suspect]
     Active Substance: HYDROCORTISONE
     Indication: POSTERIOR REVERSIBLE ENCEPHALOPATHY SYNDROME
     Dosage: 300 MILLIGRAM DAILY; PULSE TREATMENT; FOR 3 DAYS
     Route: 065
  16. HYDROCORTISONE. [Suspect]
     Active Substance: HYDROCORTISONE
     Indication: POSTERIOR REVERSIBLE ENCEPHALOPATHY SYNDROME
     Dosage: 50 MILLIGRAM DAILY; PULSE TREATMENT; FOR 2 DAYS
     Route: 065

REACTIONS (7)
  - Posterior reversible encephalopathy syndrome [Recovering/Resolving]
  - Gait disturbance [Recovering/Resolving]
  - Status epilepticus [Unknown]
  - Propofol infusion syndrome [Recovering/Resolving]
  - Multiple organ dysfunction syndrome [Unknown]
  - Immobilisation syndrome [Recovering/Resolving]
  - Drug ineffective [Unknown]
